FAERS Safety Report 7409988-8 (Version None)
Quarter: 2011Q2

REPORT INFORMATION
  Report Type: 
  Country: None (occurrence: None)
  Receive Date: 20110412
  Receipt Date: 20110328
  Transmission Date: 20111010
  Serious: Yes (Death, Life-Threatening, Hospitalization)
  Sender: FDA-Public Use
  Company Number: ES-PFIZER INC-ES-WYE-G02472908

PATIENT
  Age: 80 Year
  Sex: Male
  Weight: 80 kg

DRUGS (8)
  1. ACETYLSALICYLIC ACID/PARACETAMOL [Concomitant]
     Dosage: UNK
     Route: 042
     Dates: start: 20081024, end: 20081103
  2. METOCLOPRAMIDE [Concomitant]
     Dosage: UNK
     Route: 042
     Dates: start: 20081024, end: 20081026
  3. METAMIZOLE SODIUM [Suspect]
     Indication: ANALGESIC THERAPY
     Dosage: 1.0 DF, 2X/DAY
     Route: 042
     Dates: start: 20081024, end: 20081025
  4. TIGECYCLINE [Suspect]
     Indication: DIVERTICULITIS
     Dosage: 50 UNITS, 2X/DAY
     Route: 042
     Dates: start: 20081024, end: 20081028
  5. INSULIN [Concomitant]
     Dosage: UNK
     Route: 058
     Dates: start: 20081024, end: 20081103
  6. METAMIZOLE SODIUM [Suspect]
     Indication: BODY TEMPERATURE INCREASED
  7. HEPARIN-FRACTION, SODIUM SALT [Concomitant]
     Dosage: UNK
     Route: 058
     Dates: start: 20081024, end: 20081103
  8. PANTOPRAZOLE [Concomitant]
     Dosage: UNK
     Route: 042
     Dates: start: 20081024, end: 20081025

REACTIONS (5)
  - SEPSIS [None]
  - LEUKOPENIA [None]
  - THROMBOCYTOPENIA [None]
  - RENAL FAILURE ACUTE [None]
  - CONDITION AGGRAVATED [None]
